FAERS Safety Report 19855905 (Version 1)
Quarter: 2021Q3

REPORT INFORMATION
  Report Type: Spontaneous
  Country: US (occurrence: US)
  Receive Date: 20210920
  Receipt Date: 20210920
  Transmission Date: 20211014
  Serious: No
  Sender: FDA-Public Use
  Company Number: None

PATIENT
  Age: 67 Year
  Sex: Male

DRUGS (1)
  1. TOCILIZUMAB (TOCILIZUMAB 20MG/ML INJ,SOLN,20ML) [Suspect]
     Active Substance: TOCILIZUMAB
     Indication: UPPER RESPIRATORY TRACT INFECTION
     Route: 042
     Dates: start: 20210722, end: 20210722

REACTIONS (1)
  - Sepsis [None]

NARRATIVE: CASE EVENT DATE: 20210726
